FAERS Safety Report 8069370-X (Version None)
Quarter: 2011Q4

REPORT INFORMATION
  Report Type: 
  Country: None (occurrence: None)
  Receive Date: 20111221
  Receipt Date: 20110907
  Transmission Date: 20120403
  Serious: Yes (Hospitalization)
  Sender: FDA-Public Use
  Company Number: PHHY2011US03355

PATIENT
  Age: 82 Year
  Sex: Female
  Weight: 63.5 kg

DRUGS (9)
  1. AMOXICILLIN [Concomitant]
  2. BIAXIN [Concomitant]
  3. OMEPRAZOLE [Concomitant]
  4. METOPROLOL TARTRATE [Concomitant]
  5. NORVASC [Concomitant]
  6. EXJADE [Suspect]
     Indication: MYELODYSPLASTIC SYNDROME
     Dosage: 125 MG, QD ORAL
     Route: 048
     Dates: start: 20101004, end: 20110907
  7. EXJADE [Suspect]
     Indication: IRON OVERLOAD
     Dosage: 125 MG, QD ORAL
     Route: 048
     Dates: start: 20101004, end: 20110907
  8. CITRACAL (CALCIUM CITRATE) [Concomitant]
  9. ACETAMINOPHEN [Concomitant]

REACTIONS (2)
  - DUODENAL ULCER HAEMORRHAGE [None]
  - DRUG INEFFECTIVE [None]
